FAERS Safety Report 16894612 (Version 1)
Quarter: 2019Q4

REPORT INFORMATION
  Report Type: Spontaneous
  Country: US (occurrence: US)
  Receive Date: 20191008
  Receipt Date: 20191008
  Transmission Date: 20200122
  Serious: No
  Sender: FDA-Public Use
  Company Number: US-PFIZER INC-2019430215

PATIENT
  Age: 72 Year
  Sex: Male

DRUGS (1)
  1. EUCRISA [Suspect]
     Active Substance: CRISABOROLE
     Dosage: UNK , 2X/DAY (APPLY A THIN LAYER TWICE A DAY)

REACTIONS (1)
  - Therapeutic product effect incomplete [Unknown]
